FAERS Safety Report 7910702-8 (Version None)
Quarter: 2011Q4

REPORT INFORMATION
  Report Type: 
  Country: None (occurrence: None)
  Receive Date: 20111111
  Receipt Date: 20111107
  Transmission Date: 20120403
  Serious: Yes (Life-Threatening, Hospitalization, Other)
  Sender: FDA-Public Use
  Company Number: CA-ASTRAZENECA-2011SE67287

PATIENT
  Age: 18 Year
  Sex: Male
  Weight: 73 kg

DRUGS (5)
  1. RISPERIDONE [Suspect]
     Route: 065
  2. FLUVOXAMINE MALEATE [Concomitant]
     Route: 065
  3. SEROQUEL [Suspect]
     Route: 048
  4. RISPERDAL CONSTA [Suspect]
     Route: 030
  5. COGENTIN [Concomitant]
     Route: 065

REACTIONS (7)
  - BLOOD CHOLESTEROL INCREASED [None]
  - BLOOD CHLORIDE DECREASED [None]
  - BLOOD TRIGLYCERIDES INCREASED [None]
  - BLOOD SODIUM DECREASED [None]
  - DIABETES MELLITUS [None]
  - GLYCOSYLATED HAEMOGLOBIN INCREASED [None]
  - SERUM FERRITIN DECREASED [None]
